FAERS Safety Report 23851040 (Version 1)
Quarter: 2024Q2

REPORT INFORMATION
  Report Type: Spontaneous
  Country: JP (occurrence: JP)
  Receive Date: 20240514
  Receipt Date: 20240514
  Transmission Date: 20240715
  Serious: Yes (Death, Hospitalization, Other)
  Sender: FDA-Public Use
  Company Number: JP-BAYER-2024A069984

PATIENT
  Age: 80 Year
  Sex: Male

DRUGS (1)
  1. XARELTO [Suspect]
     Active Substance: RIVAROXABAN
     Indication: Pulmonary embolism
     Dosage: 15 MG, QD
     Route: 048

REACTIONS (7)
  - Neoplasm malignant [Fatal]
  - Cancer pain [Unknown]
  - Metastases to bone [Unknown]
  - Sepsis [Unknown]
  - Decreased appetite [Unknown]
  - Hypokinesia [Unknown]
  - Urinary tract infection [Unknown]
